FAERS Safety Report 25420465 (Version 1)
Quarter: 2025Q2

REPORT INFORMATION
  Report Type: Report from Study
  Country: US (occurrence: US)
  Receive Date: 20250611
  Receipt Date: 20250611
  Transmission Date: 20250717
  Serious: Yes (Other)
  Sender: ABBVIE
  Company Number: US-ABBVIE-6311574

PATIENT
  Sex: Female

DRUGS (1)
  1. SKYRIZI [Suspect]
     Active Substance: RISANKIZUMAB-RZAA
     Indication: Crohn^s disease
     Route: 058
     Dates: start: 20240116

REACTIONS (2)
  - Lymphadenectomy [Unknown]
  - Malignant melanoma of sites other than skin [Not Recovered/Not Resolved]
